FAERS Safety Report 7921290-4 (Version None)
Quarter: 2011Q4

REPORT INFORMATION
  Report Type: 
  Country: None (occurrence: None)
  Receive Date: 20111117
  Receipt Date: 20111110
  Transmission Date: 20120403
  Serious: Yes (Life-Threatening, Hospitalization)
  Sender: FDA-Public Use
  Company Number: NL-AMGEN-NLDSP2011059541

PATIENT
  Age: 58 Year
  Sex: Female

DRUGS (5)
  1. PREDNISONE [Concomitant]
     Indication: RHEUMATOID ARTHRITIS
     Dosage: 7.5 MG, 1X/DAY
  2. ENBREL [Suspect]
     Indication: RHEUMATOID ARTHRITIS
     Dosage: 25 MG, WEEKLY
     Route: 058
     Dates: start: 20090101, end: 20111025
  3. ZANTAC [Concomitant]
     Dosage: 150 MG, 1X/DAY
  4. SELOKEEN                           /00376902/ [Concomitant]
     Dosage: 100 MG, 1X/DAY
  5. DIDROKIT                           /01103501/ [Concomitant]
     Indication: RHEUMATOID ARTHRITIS
     Dosage: UNK

REACTIONS (1)
  - PANCREATIC CARCINOMA [None]
